FAERS Safety Report 24321182 (Version 1)
Quarter: 2024Q3

REPORT INFORMATION
  Report Type: Spontaneous
  Country: IT (occurrence: IT)
  Receive Date: 20240916
  Receipt Date: 20240916
  Transmission Date: 20241017
  Serious: Yes (Other)
  Sender: JOHNSON AND JOHNSON
  Company Number: None

PATIENT
  Age: 71 Year
  Sex: Male

DRUGS (2)
  1. TREMFYA [Suspect]
     Active Substance: GUSELKUMAB
     Indication: Psoriasis
     Dosage: GUSELKUMBA 100 MG 1 FL OGNI 8 SETTIMANA
     Route: 058
     Dates: start: 20201202, end: 20240813
  2. TREMFYA [Suspect]
     Active Substance: GUSELKUMAB

REACTIONS (1)
  - Squamous cell carcinoma of lung [Not Recovered/Not Resolved]

NARRATIVE: CASE EVENT DATE: 20240401
